FAERS Safety Report 7358451-1 (Version None)
Quarter: 2011Q1

REPORT INFORMATION
  Report Type: 
  Country: None (occurrence: None)
  Receive Date: 20110307
  Receipt Date: 20110218
  Transmission Date: 20110831
  Serious: Yes (Hospitalization)
  Sender: FDA-Public Use
  Company Number: 012299

PATIENT
  Sex: Female
  Weight: 87 kg

DRUGS (12)
  1. CIMZIA [Suspect]
     Indication: CROHN'S DISEASE
     Dosage: 400 MG 1X/MONTH SUBCUTANEOUS
     Route: 058
     Dates: start: 20091117
  2. BONIVA [Concomitant]
  3. BUDESONIDE [Concomitant]
  4. MERCAPTOPURINE [Concomitant]
  5. AMBIEN [Concomitant]
  6. CELEBREX [Concomitant]
  7. ESTRACE [Concomitant]
  8. AZATHIOPRINE [Concomitant]
  9. FOLIC ACID [Concomitant]
  10. ENTOCORT EC [Concomitant]
  11. DILAUDID [Concomitant]
  12. DETROL /01350201/ [Concomitant]

REACTIONS (6)
  - PELVIC ABSCESS [None]
  - INTESTINAL RESECTION [None]
  - POSTOPERATIVE WOUND INFECTION [None]
  - DIARRHOEA [None]
  - NAUSEA [None]
  - HYPERHIDROSIS [None]
